FAERS Safety Report 19481666 (Version 1)
Quarter: 2021Q3

REPORT INFORMATION
  Report Type: Spontaneous
  Country: DE (occurrence: DE)
  Receive Date: 20210701
  Receipt Date: 20210701
  Transmission Date: 20211014
  Serious: Yes (Hospitalization)
  Sender: FDA-Public Use
  Company Number: DE-009507513-2106DEU006988

PATIENT
  Age: 78 Year
  Sex: Female

DRUGS (7)
  1. RAMICLAIR [Concomitant]
     Dosage: 10 MG, 1?0?0?0, TABLET
     Route: 048
  2. CIPROFLOXACIN. [Suspect]
     Active Substance: CIPROFLOXACIN
     Dosage: 500 MG, ONE TAKEN AS SELF?MEDICATION AND AN ALLERGIC REACTION, TABLETS
     Route: 048
  3. BISOPROLOL [Concomitant]
     Active Substance: BISOPROLOL
     Dosage: 5 MG, 0?0?1?0, PROLONGED?RELEASE TABLET
     Route: 048
  4. JANUMET [Suspect]
     Active Substance: METFORMIN HYDROCHLORIDE\SITAGLIPTIN PHOSPHATE
     Dosage: 1000|50 MG, 1?0?1?0, TABLET
     Route: 048
  5. ASS HEXAL [Concomitant]
     Active Substance: ASPIRIN
     Dosage: 100 MG, 1?0?0?0, TABLET
     Route: 048
  6. AMLODIPINE [Concomitant]
     Active Substance: AMLODIPINE BESYLATE
     Dosage: 5 MG, 1?0?0?0, TABLETTEN
     Route: 048
  7. ATORVASTATIN [Concomitant]
     Active Substance: ATORVASTATIN
     Dosage: 20 MG, 0?0?1?0, TABLET
     Route: 048

REACTIONS (4)
  - Eye swelling [Recovering/Resolving]
  - Dizziness [Recovering/Resolving]
  - Hyperglycaemia [Recovering/Resolving]
  - Eye pruritus [Recovering/Resolving]
